FAERS Safety Report 18495115 (Version 2)
Quarter: 2021Q1

REPORT INFORMATION
  Report Type: Spontaneous
  Country: US (occurrence: US)
  Receive Date: 20201112
  Receipt Date: 20210111
  Transmission Date: 20210419
  Serious: No
  Sender: FDA-Public Use
  Company Number: US-BIOGEN-2020BI00825045

PATIENT
  Age: 17 Year
  Sex: Male

DRUGS (2)
  1. TYSABRI [Suspect]
     Active Substance: NATALIZUMAB
     Indication: MULTIPLE SCLEROSIS
     Dosage: INFUSED OVER 1 HOUR
     Route: 042
     Dates: start: 20190903
  2. TYSABRI [Suspect]
     Active Substance: NATALIZUMAB
     Route: 042

REACTIONS (3)
  - Off label use [Unknown]
  - Prescribed underdose [Not Recovered/Not Resolved]
  - Lethargy [Recovered/Resolved]

NARRATIVE: CASE EVENT DATE: 20190903
